FAERS Safety Report 5421067-8 (Version None)
Quarter: 2007Q3

REPORT INFORMATION
  Report Type: 
  Country: None (occurrence: None)
  Receive Date: 20070821
  Receipt Date: 20070816
  Transmission Date: 20080115
  Serious: No
  Sender: FDA-Public Use
  Company Number: B0470516A

PATIENT
  Age: 25 Year
  Sex: Female

DRUGS (3)
  1. PAXIL [Suspect]
     Indication: DEPRESSION
     Route: 048
     Dates: start: 20060616
  2. DOGMATYL [Suspect]
     Route: 048
     Dates: start: 20060616, end: 20070511
  3. DEPAS [Concomitant]
     Dosage: 2MG PER DAY
     Route: 048
     Dates: start: 20060616, end: 20070420

REACTIONS (4)
  - AMENORRHOEA [None]
  - GALACTORRHOEA [None]
  - HYPERPROLACTINAEMIA [None]
  - WEIGHT INCREASED [None]
